FAERS Safety Report 6745808-2 (Version None)
Quarter: 2010Q2

REPORT INFORMATION
  Report Type: 
  Country: None (occurrence: None)
  Receive Date: 20100528
  Receipt Date: 20100520
  Transmission Date: 20101027
  Serious: Yes (Life-Threatening, Hospitalization, Other)
  Sender: FDA-Public Use
  Company Number: JP-NOVOPROD-305021

PATIENT
  Age: 72 Year
  Sex: Male
  Weight: 70 kg

DRUGS (9)
  1. LEVEMIR [Suspect]
     Indication: TYPE 2 DIABETES MELLITUS
     Dosage: 24 U, QD
     Route: 058
     Dates: start: 20081111
  2. LEVEMIR [Suspect]
     Dosage: 26 U, QD
     Dates: start: 20090406
  3. NORVASC [Concomitant]
     Dosage: 10 MG, QD
     Route: 048
  4. COVERSYL                           /00790701/ [Concomitant]
     Dosage: 4 MG, QD
     Route: 048
  5. DOXAZOSIN MESYLATE [Concomitant]
     Dosage: 2 MG, QD
     Route: 048
  6. OLMESARTAN MEDOXOMIL [Concomitant]
     Dosage: 20 MG, QD
     Route: 048
  7. ARTIST [Concomitant]
     Dosage: 15 MG, QD
     Route: 048
  8. KINEDAK [Concomitant]
     Dosage: 150 MG, QD
     Route: 048
  9. METHYLCOBAL [Concomitant]
     Dosage: 1500 MG, QD
     Route: 048

REACTIONS (2)
  - HYPOGLYCAEMIC UNCONSCIOUSNESS [None]
  - SICK SINUS SYNDROME [None]
